FAERS Safety Report 7571893-4 (Version None)
Quarter: 2011Q2

REPORT INFORMATION
  Report Type: 
  Country: None (occurrence: None)
  Receive Date: 20110624
  Receipt Date: 20100803
  Transmission Date: 20111010
  Serious: No
  Sender: FDA-Public Use
  Company Number: A0873775A

PATIENT
  Age: 80 Year
  Sex: Female

DRUGS (8)
  1. VERAMYST [Suspect]
     Dosage: 2SPR TWICE PER DAY
     Route: 045
     Dates: start: 20100719
  2. CALCIUM CARBONATE [Concomitant]
  3. ANTIHISTAMINE [Concomitant]
  4. VITAMIN D [Concomitant]
  5. FENTANYL-100 [Concomitant]
  6. ARICEPT [Concomitant]
  7. PAIN MEDICATION [Concomitant]
  8. NEURONTIN [Concomitant]

REACTIONS (1)
  - DRUG INEFFECTIVE [None]
